FAERS Safety Report 7179237-7 (Version None)
Quarter: 2010Q4

REPORT INFORMATION
  Report Type: 
  Country: None (occurrence: None)
  Receive Date: 20101208
  Receipt Date: 20101122
  Transmission Date: 20110411
  Serious: Yes (Other)
  Sender: FDA-Public Use
  Company Number: 2010005128

PATIENT
  Age: 47 Year
  Sex: Male

DRUGS (10)
  1. TARCEVA [Suspect]
     Indication: LUNG ADENOCARCINOMA
     Dosage: (150 MG), ORAL
     Route: 048
  2. WARFARIN (WARFARIN) [Suspect]
     Indication: EMBOLISM VENOUS
     Dosage: (2.5 MG)
  3. PACLITAXEL [Concomitant]
  4. CARBOPLATIN [Concomitant]
  5. BEVACIZUMAB [Concomitant]
  6. DARBEPOETIN ALFA (DARBEPOETIN ALFA) [Concomitant]
  7. GRANISETRON (GRANISETRON) [Concomitant]
  8. DEXAMETHASONE [Concomitant]
  9. DIPHENHYDRAMINE HCL [Concomitant]
  10. CIMETIDINE [Concomitant]

REACTIONS (8)
  - CONTUSION [None]
  - DIARRHOEA [None]
  - DRUG INTERACTION [None]
  - HAEMARTHROSIS [None]
  - ILL-DEFINED DISORDER [None]
  - INTERNATIONAL NORMALISED RATIO INCREASED [None]
  - RASH GENERALISED [None]
  - SWELLING [None]
